FAERS Safety Report 21007636 (Version 1)
Quarter: 2022Q2

REPORT INFORMATION
  Report Type: Spontaneous
  Country: US (occurrence: US)
  Receive Date: 20220626
  Receipt Date: 20220626
  Transmission Date: 20220720
  Serious: No
  Sender: FDA-Public Use
  Company Number: US-drreddys-SPO/USA/22/0151195

PATIENT
  Age: 24 Year
  Sex: Female

DRUGS (2)
  1. ZENATANE [Suspect]
     Active Substance: ISOTRETINOIN
     Indication: Product used for unknown indication
     Dosage: RMA ISSUE DATE:17 FEBRUARY 2022 10:23:06 AM; 16 MAY 2022 11:41:39 AM
  2. ZENATANE [Suspect]
     Active Substance: ISOTRETINOIN
     Dosage: RMA ISSUE DATE: 17 MARCH 2022 01:05:33 PM; 18 APRIL 2022 03:31:23 PM

REACTIONS (1)
  - Treatment noncompliance [Unknown]
